FAERS Safety Report 24690645 (Version 5)
Quarter: 2025Q1

REPORT INFORMATION
  Report Type: Spontaneous
  Country: LT (occurrence: LT)
  Receive Date: 20241203
  Receipt Date: 20250205
  Transmission Date: 20250409
  Serious: Yes (Death, Life-Threatening, Hospitalization, Other)
  Sender: SANOFI AVENTIS
  Company Number: LT-SA-2024SA354704

PATIENT
  Age: 52 Year
  Sex: Male
  Weight: 93 kg

DRUGS (23)
  1. FABRAZYME [Suspect]
     Active Substance: AGALSIDASE BETA
     Indication: Fabry^s disease
     Dosage: 95 MG, QOW
     Route: 041
     Dates: start: 20131121, end: 20241025
  2. Alfacalcidol alvogen [Concomitant]
  3. CALCIUM ACETATE\MAGNESIUM CARBONATE [Concomitant]
     Active Substance: CALCIUM ACETATE\MAGNESIUM CARBONATE
     Indication: Nephrogenic anaemia
  4. CALCIUM ACETATE\MAGNESIUM CARBONATE [Concomitant]
     Active Substance: CALCIUM ACETATE\MAGNESIUM CARBONATE
     Indication: Hyperparathyroidism secondary
  5. METOPROLOL [Concomitant]
     Active Substance: METOPROLOL
     Indication: Blood pressure increased
  6. METOPROLOL [Concomitant]
     Active Substance: METOPROLOL
     Indication: Myocardial ischaemia
  7. HEMAFER S [Concomitant]
     Indication: Nephrogenic anaemia
     Dosage: 100 MG, QW
  8. DARBEPOETIN ALFA [Concomitant]
     Active Substance: DARBEPOETIN ALFA
     Indication: Nephrogenic anaemia
     Dosage: 100 UG, QW
     Route: 065
  9. ALFACALCIDOL [Concomitant]
     Active Substance: ALFACALCIDOL
     Indication: Hyperparathyroidism
     Dosage: 1 UG, QD
  10. DOXAZOSIN [Concomitant]
     Active Substance: DOXAZOSIN MESYLATE
     Indication: Pulmonary arterial hypertension
  11. ASPIRIN [Concomitant]
     Active Substance: ASPIRIN
     Indication: Myocardial ischaemia
     Dosage: 100 MG, (EVENING)
  12. ASPIRIN [Concomitant]
     Active Substance: ASPIRIN
     Indication: Blood pressure increased
  13. ASPIRIN [Concomitant]
     Active Substance: ASPIRIN
     Indication: Prophylaxis
  14. ROSUVASTATIN [Concomitant]
     Active Substance: ROSUVASTATIN
     Indication: Myocardial ischaemia
  15. ROSUVASTATIN [Concomitant]
     Active Substance: ROSUVASTATIN
     Indication: Blood pressure increased
  16. ROSUVASTATIN [Concomitant]
     Active Substance: ROSUVASTATIN
     Indication: Dyslipidaemia
  17. LORAZEPAM [Concomitant]
     Active Substance: LORAZEPAM
     Indication: Insomnia
     Dosage: UNK UNK, HS
  18. AMLODIPINE\OLMESARTAN [Concomitant]
     Active Substance: AMLODIPINE\OLMESARTAN
     Indication: Hypertension
  19. MOXONIDINE [Concomitant]
     Active Substance: MOXONIDINE
     Indication: Hypertension
  20. MEROPENEM [Concomitant]
     Active Substance: MEROPENEM
     Dates: start: 20241109
  21. LINEZOLID [Concomitant]
     Active Substance: LINEZOLID
     Dates: start: 20241109
  22. LEVOTHYROXINE [Concomitant]
     Active Substance: LEVOTHYROXINE
  23. DIGOXIN [Concomitant]
     Active Substance: DIGOXIN

REACTIONS (14)
  - Peritonitis [Fatal]
  - Abdominal sepsis [Fatal]
  - Intestinal perforation [Fatal]
  - Postoperative wound complication [Fatal]
  - Colitis [Unknown]
  - Acute myocardial infarction [Unknown]
  - Acute respiratory failure [Unknown]
  - Arthropathy [Unknown]
  - Hyperplasia [Unknown]
  - Adenoma benign [Unknown]
  - Parathyroid disorder [Unknown]
  - Enterococcus test positive [Unknown]
  - Hypotension [Unknown]
  - Inappropriate schedule of product administration [Unknown]

NARRATIVE: CASE EVENT DATE: 20200130
